FAERS Safety Report 9726211 (Version 2)
Quarter: 2013Q4

REPORT INFORMATION
  Report Type: Report from Study
  Country: CA (occurrence: CA)
  Receive Date: 20131203
  Receipt Date: 20131203
  Transmission Date: 20140711
  Serious: Yes (Death, Hospitalization, Other)
  Sender: FDA-Public Use
  Company Number: CA-ABBVIE-13P-028-1065700-00

PATIENT
  Age: 81 Year
  Sex: Male
  Weight: 80.9 kg

DRUGS (4)
  1. LUPRON DEPOT [Suspect]
     Indication: PRODUCT USED FOR UNKNOWN INDICATION
     Route: 030
     Dates: start: 20121228
  2. NOVANTRONE [Concomitant]
     Indication: CHEMOTHERAPY
  3. ZYTIGA [Concomitant]
     Indication: PRODUCT USED FOR UNKNOWN INDICATION
  4. DENOSUMAB [Concomitant]
     Indication: PRODUCT USED FOR UNKNOWN INDICATION

REACTIONS (9)
  - Disease progression [Fatal]
  - General physical health deterioration [Recovered/Resolved]
  - Prostate cancer [Recovering/Resolving]
  - Pain [Unknown]
  - Bone pain [Unknown]
  - Metastases to bone [Unknown]
  - Hypophosphataemia [Unknown]
  - Hypocalcaemia [Unknown]
  - Myalgia [Unknown]
